FAERS Safety Report 7459430-6 (Version None)
Quarter: 2011Q2

REPORT INFORMATION
  Report Type: 
  Country: None (occurrence: None)
  Receive Date: 20110505
  Receipt Date: 20110425
  Transmission Date: 20111010
  Serious: Yes (Other)
  Sender: FDA-Public Use
  Company Number: FR-JNJFOC-20110308209

PATIENT
  Age: 60 Year
  Sex: Female

DRUGS (2)
  1. YONDELIS [Suspect]
     Indication: OVARIAN EPITHELIAL CANCER
     Dosage: COMPLETED TREATEMENT WITH 6 TRABECTEDIN INFUSIONS
     Route: 042
  2. CAELYX [Suspect]
     Indication: PRODUCT USED FOR UNKNOWN INDICATION
     Route: 065

REACTIONS (2)
  - HEPATOTOXICITY [None]
  - HAEMATOTOXICITY [None]
